FAERS Safety Report 22191204 (Version 1)
Quarter: 2023Q2

REPORT INFORMATION
  Report Type: Spontaneous
  Country: US (occurrence: US)
  Receive Date: 20230410
  Receipt Date: 20230410
  Transmission Date: 20230722
  Serious: No
  Sender: FDA-Public Use
  Company Number: US-Accord-308023

PATIENT

DRUGS (1)
  1. ATROPINE [Suspect]
     Active Substance: ATROPINE
     Indication: Ill-defined disorder

REACTIONS (2)
  - Inappropriate schedule of product administration [Unknown]
  - Device malfunction [Unknown]
